FAERS Safety Report 6569349-0 (Version None)
Quarter: 2010Q1

REPORT INFORMATION
  Report Type: 
  Country: None (occurrence: None)
  Receive Date: 20100204
  Receipt Date: 20100124
  Transmission Date: 20100710
  Serious: Yes (Hospitalization)
  Sender: FDA-Public Use
  Company Number: US-BIOGENIDEC-2009BI040459

PATIENT
  Age: 35 Year
  Sex: Female
  Weight: 87 kg

DRUGS (7)
  1. TYSABRI [Suspect]
     Indication: MULTIPLE SCLEROSIS
     Route: 042
     Dates: start: 20080912, end: 20091217
  2. NEXIUM [Concomitant]
     Indication: GASTROOESOPHAGEAL REFLUX DISEASE
     Route: 048
  3. ZANAFLEX [Concomitant]
     Indication: MUSCLE SPASMS
     Route: 048
  4. LYRICA [Concomitant]
     Indication: PAIN
     Route: 048
  5. MS CONTIN [Concomitant]
     Indication: PAIN
     Route: 048
  6. ABILIFY [Concomitant]
     Indication: FATIGUE
     Route: 048
  7. PRISTIQ [Concomitant]
     Indication: DEPRESSION
     Route: 048

REACTIONS (16)
  - ABDOMINAL PAIN [None]
  - ALANINE AMINOTRANSFERASE INCREASED [None]
  - ASPARTATE AMINOTRANSFERASE INCREASED [None]
  - ASTHENIA [None]
  - BLOOD CREATININE INCREASED [None]
  - BRONCHITIS [None]
  - DECREASED APPETITE [None]
  - DEHYDRATION [None]
  - GASTROENTERITIS VIRAL [None]
  - HYPERTENSION [None]
  - HYPOTENSION [None]
  - LOCALISED INFECTION [None]
  - NEUROGENIC BLADDER [None]
  - RENAL FAILURE ACUTE [None]
  - VAGINAL DISCHARGE [None]
  - VULVOVAGINAL PRURITUS [None]
